FAERS Safety Report 4654639-9 (Version None)
Quarter: 2005Q2

REPORT INFORMATION
  Report Type: 
  Country: None (occurrence: None)
  Receive Date: 20050506
  Receipt Date: 20050426
  Transmission Date: 20051028
  Serious: Yes (Hospitalization, Other)
  Sender: FDA-Public Use
  Company Number: NLWYE615526APR05

PATIENT
  Sex: Female

DRUGS (4)
  1. ENBREL [Suspect]
     Indication: RHEUMATOID ARTHRITIS
     Route: 058
     Dates: start: 20050101
  2. DIURETICS [Concomitant]
  3. GASTROINTESTINAL MEDICATION NOS [Concomitant]
  4. LAXATIVES [Concomitant]

REACTIONS (2)
  - DEHYDRATION [None]
  - EPILEPSY [None]
